FAERS Safety Report 7303748-4 (Version None)
Quarter: 2011Q1

REPORT INFORMATION
  Report Type: 
  Country: None (occurrence: None)
  Receive Date: 20110221
  Receipt Date: 20110210
  Transmission Date: 20110831
  Serious: Yes (Other)
  Sender: FDA-Public Use
  Company Number: US-ROCHE-736006

PATIENT
  Sex: Female
  Weight: 89.8 kg

DRUGS (3)
  1. ACCUTANE [Suspect]
     Route: 065
     Dates: start: 19930601, end: 19940101
  2. ACCUTANE [Suspect]
     Route: 065
     Dates: end: 19981231
  3. ACCUTANE [Suspect]
     Indication: ACNE
     Route: 065
     Dates: start: 19920101

REACTIONS (5)
  - GASTROINTESTINAL INJURY [None]
  - INFLAMMATORY BOWEL DISEASE [None]
  - ANXIETY [None]
  - PANIC ATTACK [None]
  - CROHN'S DISEASE [None]
